FAERS Safety Report 13121854 (Version 1)
Quarter: 2017Q1

REPORT INFORMATION
  Report Type: Spontaneous
  Country: US (occurrence: US)
  Receive Date: 20170117
  Receipt Date: 20170117
  Transmission Date: 20170428
  Serious: No
  Sender: FDA-Public Use
  Company Number: US-SHIRE-US201700634

PATIENT
  Sex: Female

DRUGS (1)
  1. XIIDRA [Suspect]
     Active Substance: LIFITEGRAST
     Indication: DRY EYE
     Dosage: UNK
     Dates: start: 201701

REACTIONS (7)
  - Eye pruritus [Unknown]
  - Depressed mood [Unknown]
  - Anger [Unknown]
  - Therapeutic response unexpected [Unknown]
  - Instillation site reaction [Unknown]
  - Eye discharge [Unknown]
  - Instillation site pain [Unknown]
